FAERS Safety Report 7715407-4 (Version None)
Quarter: 2011Q3

REPORT INFORMATION
  Report Type: 
  Country: None (occurrence: None)
  Receive Date: 20110829
  Receipt Date: 20110826
  Transmission Date: 20111222
  Serious: Yes (Other)
  Sender: FDA-Public Use
  Company Number: US-PFIZER INC-2011199377

PATIENT
  Sex: Female

DRUGS (1)
  1. GEODON [Suspect]
     Indication: ANXIETY
     Dosage: 80 MG, 1X/DAY
     Route: 048

REACTIONS (7)
  - COGWHEEL RIGIDITY [None]
  - BELLIGERENCE [None]
  - DROOLING [None]
  - MUSCLE RIGIDITY [None]
  - EXTRAPYRAMIDAL DISORDER [None]
  - MENTAL IMPAIRMENT [None]
  - MANIA [None]
